FAERS Safety Report 17425222 (Version 6)
Quarter: 2021Q4

REPORT INFORMATION
  Report Type: Spontaneous
  Country: FR (occurrence: FR)
  Receive Date: 20200217
  Receipt Date: 20211028
  Transmission Date: 20220303
  Serious: Yes (Other)
  Sender: FDA-Public Use
  Company Number: FR-EMA-DD-20200204-FAIZAN_M-101529

PATIENT
  Age: 74 Year
  Sex: Female

DRUGS (24)
  1. LOVENOX [Suspect]
     Active Substance: ENOXAPARIN SODIUM
     Indication: Skin test
     Dosage: UNK
     Route: 023
  2. LOVENOX [Suspect]
     Active Substance: ENOXAPARIN SODIUM
     Indication: Skin test
  3. LOVENOX [Suspect]
     Active Substance: ENOXAPARIN SODIUM
     Indication: Anticoagulant therapy
  4. CALCIPARINE [Suspect]
     Active Substance: HEPARIN CALCIUM
     Indication: Skin test
     Route: 023
  5. CALCIPARINE [Suspect]
     Active Substance: HEPARIN CALCIUM
     Indication: Skin test
     Route: 003
  6. CALCIPARINE [Suspect]
     Active Substance: HEPARIN CALCIUM
     Indication: Anticoagulant therapy
  7. HEPARIN SODIUM [Suspect]
     Active Substance: HEPARIN SODIUM
     Indication: Skin test
     Route: 023
  8. HEPARIN SODIUM [Suspect]
     Active Substance: HEPARIN SODIUM
     Indication: Skin test
  9. HEPARIN SODIUM [Suspect]
     Active Substance: HEPARIN SODIUM
     Indication: Anticoagulant therapy
  10. BISOPROLOL [Suspect]
     Active Substance: BISOPROLOL
     Indication: Product used for unknown indication
     Route: 065
  11. ORGARAN [Interacting]
     Active Substance: DANAPAROID SODIUM
     Indication: Skin test
     Route: 023
  12. ORGARAN [Interacting]
     Active Substance: DANAPAROID SODIUM
     Indication: Skin test
  13. ORGARAN [Interacting]
     Active Substance: DANAPAROID SODIUM
     Indication: Anticoagulant therapy
  14. INNOHEP [Suspect]
     Active Substance: TINZAPARIN SODIUM
     Indication: Skin test
     Route: 023
  15. INNOHEP [Suspect]
     Active Substance: TINZAPARIN SODIUM
     Indication: Skin test
  16. PANTOPRAZOLE [Concomitant]
     Active Substance: PANTOPRAZOLE
     Indication: Gastrointestinal disorder
     Dosage: UNK
     Route: 065
  17. KETOPROFEN [Concomitant]
     Active Substance: KETOPROFEN
     Indication: Gastrointestinal surgery
     Dosage: UNK
     Route: 065
  18. PHLOROGLUCINOL [Concomitant]
     Active Substance: PHLOROGLUCINOL
     Indication: Gastrointestinal surgery
     Dosage: UNK
     Route: 065
  19. TRAMADOL [Concomitant]
     Active Substance: TRAMADOL
     Indication: Gastrointestinal surgery
     Dosage: UNK
     Route: 065
  20. NEFOPAM [Concomitant]
     Active Substance: NEFOPAM
     Indication: Gastrointestinal surgery
     Dosage: UNK
     Route: 065
  21. FONDAPARINUX [Concomitant]
     Active Substance: FONDAPARINUX
     Indication: Skin test
     Route: 023
  22. FONDAPARINUX [Concomitant]
     Active Substance: FONDAPARINUX
     Indication: Skin test
  23. BIVALIRUDIN [Concomitant]
     Active Substance: BIVALIRUDIN
     Indication: Skin test
     Route: 023
  24. BIVALIRUDIN [Concomitant]
     Active Substance: BIVALIRUDIN
     Indication: Skin test

REACTIONS (6)
  - Acute generalised exanthematous pustulosis [Unknown]
  - Rash [Unknown]
  - Pyrexia [Unknown]
  - Exfoliative rash [Unknown]
  - Cross sensitivity reaction [Unknown]
  - Drug interaction [Unknown]
